FAERS Safety Report 10046288 (Version 1)
Quarter: 2014Q1

REPORT INFORMATION
  Report Type: Report from Study
  Country: FR (occurrence: FR)
  Receive Date: 20140331
  Receipt Date: 20140331
  Transmission Date: 20141002
  Serious: Yes (Hospitalization)
  Sender: FDA-Public Use
  Company Number: FR-ROCHE-1369118

PATIENT
  Sex: Male

DRUGS (21)
  1. RITUXIMAB [Suspect]
     Indication: RHEUMATOID ARTHRITIS
     Route: 041
     Dates: start: 20070629
  2. RITUXIMAB [Suspect]
     Route: 041
     Dates: start: 20070713
  3. RITUXIMAB [Suspect]
     Route: 041
     Dates: start: 20080514
  4. RITUXIMAB [Suspect]
     Route: 041
     Dates: start: 20080528
  5. RITUXIMAB [Suspect]
     Route: 041
     Dates: start: 20090416
  6. RITUXIMAB [Suspect]
     Route: 041
     Dates: start: 20090505
  7. RITUXIMAB [Suspect]
     Route: 041
     Dates: start: 20100728
  8. RITUXIMAB [Suspect]
     Route: 041
     Dates: start: 20100816
  9. RITUXIMAB [Suspect]
     Route: 041
     Dates: start: 20120601
  10. RITUXIMAB [Suspect]
     Route: 041
     Dates: start: 20120615
  11. RITUXIMAB [Suspect]
     Route: 041
     Dates: start: 20130307
  12. RITUXIMAB [Suspect]
     Route: 041
     Dates: start: 20130321
  13. METHYLPREDNISOLON [Concomitant]
     Indication: PREMEDICATION
     Route: 065
  14. PARACETAMOL [Concomitant]
  15. HYDROXYCHLOROQUINE [Concomitant]
     Route: 065
  16. CORTANCYL [Concomitant]
     Route: 065
     Dates: start: 20080528
  17. CORTANCYL [Concomitant]
     Route: 065
     Dates: start: 20090505
  18. CORTANCYL [Concomitant]
     Route: 065
     Dates: start: 20100728
  19. CORTANCYL [Concomitant]
     Route: 065
     Dates: start: 20120601
  20. CORTANCYL [Concomitant]
     Route: 065
     Dates: start: 20120615
  21. CORTANCYL [Concomitant]
     Route: 065
     Dates: start: 20130321

REACTIONS (7)
  - Emphysema [Not Recovered/Not Resolved]
  - Infusion related reaction [Recovered/Resolved]
  - Dyspepsia [Not Recovered/Not Resolved]
  - Pruritus [Unknown]
  - Hypertension [Not Recovered/Not Resolved]
  - Crepitations [Not Recovered/Not Resolved]
  - Skin lesion [Unknown]
